FAERS Safety Report 8004003-X (Version None)
Quarter: 2011Q4

REPORT INFORMATION
  Report Type: 
  Country: None (occurrence: None)
  Receive Date: 20111222
  Receipt Date: 20111221
  Transmission Date: 20120403
  Serious: Yes (Life-Threatening, Hospitalization)
  Sender: FDA-Public Use
  Company Number: DE-ROCHE-1023905

PATIENT
  Sex: Male
  Weight: 85 kg

DRUGS (1)
  1. ACTEMRA [Suspect]
     Indication: RHEUMATOID ARTHRITIS
     Route: 042
     Dates: start: 20111123, end: 20111123

REACTIONS (3)
  - RENAL FAILURE [None]
  - AORTIC THROMBOSIS [None]
  - KLEBSIELLA SEPSIS [None]
